FAERS Safety Report 5511985-4 (Version None)
Quarter: 2007Q4

REPORT INFORMATION
  Report Type: 
  Country: None (occurrence: None)
  Receive Date: 20071109
  Receipt Date: 20071101
  Transmission Date: 20080405
  Serious: Yes (Life-Threatening, Hospitalization, Disabling, Other)
  Sender: FDA-Public Use
  Company Number: US-MERCK-0710USA04354

PATIENT
  Age: 57 Year
  Sex: Male
  Weight: 90 kg

DRUGS (5)
  1. JANUMET [Suspect]
     Indication: TYPE 2 DIABETES MELLITUS
     Route: 048
     Dates: start: 20070801, end: 20070901
  2. ALLOPURINOL [Suspect]
     Indication: GOUT
     Route: 065
     Dates: start: 20070801, end: 20070101
  3. LOVASTATIN [Concomitant]
     Route: 065
  4. ZESTRIL [Suspect]
     Route: 065
  5. ASPIRIN [Concomitant]
     Route: 065

REACTIONS (10)
  - ALANINE AMINOTRANSFERASE INCREASED [None]
  - ASPARTATE AMINOTRANSFERASE INCREASED [None]
  - ERYTHEMA MULTIFORME [None]
  - HYPERGLYCAEMIA [None]
  - HYPONATRAEMIA [None]
  - ORAL CANDIDIASIS [None]
  - RENAL FAILURE ACUTE [None]
  - STEVENS-JOHNSON SYNDROME [None]
  - TENDON RUPTURE [None]
  - WEIGHT DECREASED [None]
